FAERS Safety Report 8498440-7 (Version None)
Quarter: 2012Q3

REPORT INFORMATION
  Report Type: 
  Country: None (occurrence: None)
  Receive Date: 20120709
  Receipt Date: 20120625
  Transmission Date: 20120928
  Serious: No
  Sender: FDA-Public Use
  Company Number: US-AMGEN-USASP2012039073

PATIENT
  Age: 70 Year
  Sex: Female

DRUGS (2)
  1. NEURONTIN [Concomitant]
     Dosage: UNK
  2. ENBREL [Suspect]
     Indication: RHEUMATOID ARTHRITIS
     Dosage: 50 MG, QWK
     Dates: start: 20051001

REACTIONS (5)
  - PARAESTHESIA ORAL [None]
  - RHEUMATOID ARTHRITIS [None]
  - PRODUCTIVE COUGH [None]
  - INFLUENZA [None]
  - DIZZINESS [None]
